FAERS Safety Report 4499638-5 (Version None)
Quarter: 2004Q4

REPORT INFORMATION
  Report Type: 
  Country: None (occurrence: None)
  Receive Date: 20041112
  Receipt Date: 20041103
  Transmission Date: 20050328
  Serious: Yes (Death)
  Sender: FDA-Public Use
  Company Number: US-JNJFOC-20041101480

PATIENT
  Age: 70 Year

DRUGS (2)
  1. REOPRO [Suspect]
     Route: 042
  2. ANGIOMAX [Suspect]

REACTIONS (2)
  - HAEMORRHAGE INTRACRANIAL [None]
  - HEPARIN-INDUCED THROMBOCYTOPENIA [None]
